FAERS Safety Report 8004875-9 (Version None)
Quarter: 2011Q4

REPORT INFORMATION
  Report Type: 
  Country: None (occurrence: None)
  Receive Date: 20111223
  Receipt Date: 20111223
  Transmission Date: 20120403
  Serious: Yes (Death)
  Sender: FDA-Public Use
  Company Number: None

PATIENT
  Sex: Female
  Weight: 1572.1 kg

DRUGS (1)
  1. PRADAXA [Suspect]
     Indication: HAEMORRHAGE
     Dosage: 150 MG
     Route: 048
     Dates: start: 20111214, end: 20111221

REACTIONS (4)
  - LETHARGY [None]
  - MELAENA [None]
  - OCCULT BLOOD POSITIVE [None]
  - DYSPNOEA [None]
